FAERS Safety Report 8436719-5 (Version None)
Quarter: 2012Q2

REPORT INFORMATION
  Report Type: 
  Country: None (occurrence: None)
  Receive Date: 20120611
  Receipt Date: 20120611
  Transmission Date: 20120825
  Serious: Yes (Other)
  Sender: FDA-Public Use
  Company Number: None

PATIENT
  Sex: Female
  Weight: 68.0396 kg

DRUGS (2)
  1. CIPROFLOXACIN [Suspect]
     Indication: SINUSITIS
     Dosage: 500MG BID PO
     Route: 048
     Dates: start: 20111201, end: 20111210
  2. CIPROFLOXACIN [Suspect]
     Indication: BRONCHITIS
     Dosage: 500MG BID PO
     Route: 048
     Dates: start: 20111201, end: 20111210

REACTIONS (7)
  - MUSCULAR WEAKNESS [None]
  - TENDON RUPTURE [None]
  - TENDON PAIN [None]
  - JOINT SWELLING [None]
  - ROTATOR CUFF SYNDROME [None]
  - ARTHRALGIA [None]
  - MUSCULOSKELETAL PAIN [None]
